FAERS Safety Report 11796650 (Version 3)
Quarter: 2017Q3

REPORT INFORMATION
  Report Type: Spontaneous
  Country: JP (occurrence: JP)
  Receive Date: 20151203
  Receipt Date: 20170801
  Transmission Date: 20171127
  Serious: Yes (Hospitalization)
  Sender: FDA-Public Use
  Company Number: JP-GLAXOSMITHKLINE-JP2015JPN170349

PATIENT
  Age: 77 Year
  Sex: Male
  Weight: 65 kg

DRUGS (3)
  1. VALTREX [Suspect]
     Active Substance: VALACYCLOVIR HYDROCHLORIDE
     Indication: HERPES ZOSTER
     Dosage: 1000 MG, TID
     Route: 048
     Dates: start: 20151123, end: 20151130
  2. METHYCOBAL [Concomitant]
     Active Substance: METHYLCOBALAMIN
  3. CARNACULIN [Concomitant]
     Active Substance: KALLIDINOGENASE

REACTIONS (2)
  - Drug level increased [Unknown]
  - Hallucination [Recovering/Resolving]

NARRATIVE: CASE EVENT DATE: 201511
